FAERS Safety Report 5140967-X (Version None)
Quarter: 2006Q4

REPORT INFORMATION
  Report Type: 
  Country: None (occurrence: None)
  Receive Date: 20061027
  Receipt Date: 20061027
  Transmission Date: 20070319
  Serious: Yes (Hospitalization)
  Sender: FDA-Public Use
  Company Number: None

PATIENT
  Age: 60 Year
  Sex: Male

DRUGS (19)
  1. RIBAVIRIN [Suspect]
     Indication: HEPATITIS C
     Dosage: 400MG PO QAM AND 600MG QPM
     Route: 048
     Dates: start: 20060130, end: 20061002
  2. ALBUTEROL [Concomitant]
  3. ASPIRIN [Concomitant]
  4. ATENOLOL [Concomitant]
  5. CITALOPRAM HYDROBROMIDE [Concomitant]
  6. PLAVIX [Concomitant]
  7. EPOETIN [Concomitant]
  8. ETODOLAC [Concomitant]
  9. FOLIC ACID [Concomitant]
  10. GLYBURIDE [Concomitant]
  11. LISINOPRIL [Concomitant]
  12. LOPERAMIDE [Concomitant]
  13. LORATADINE [Concomitant]
  14. METFORMIN HCL [Concomitant]
  15. OMEPRAZOLE [Concomitant]
  16. SIMETHICONE [Concomitant]
  17. THIAMINE [Concomitant]
  18. TRAZODONE HCL [Concomitant]
  19. VARDENAFIL [Concomitant]

REACTIONS (3)
  - ANAEMIA [None]
  - MELAENA [None]
  - RECTAL HAEMORRHAGE [None]
